FAERS Safety Report 4868670-1 (Version None)
Quarter: 2005Q4

REPORT INFORMATION
  Report Type: 
  Country: None (occurrence: None)
  Receive Date: 20051223
  Receipt Date: 20051214
  Transmission Date: 20060501
  Serious: Yes (Other)
  Sender: FDA-Public Use
  Company Number: 2005JP002354

PATIENT
  Age: 66 Year
  Sex: Female
  Weight: 53.2 kg

DRUGS (13)
  1. TACROLIMUS CAPSULES (TACROLIMUS CAPSULES) CAPSULE [Suspect]
     Indication: MYASTHENIA GRAVIS
     Dosage: 1 MG, ORAL
     Route: 048
     Dates: start: 20040909, end: 20040910
  2. PREDNISOLONE [Suspect]
     Indication: MYASTHENIA GRAVIS
     Dosage: SEE IMAGE
     Route: 048
     Dates: end: 20041020
  3. PREDNISOLONE [Suspect]
     Indication: MYASTHENIA GRAVIS
     Dosage: SEE IMAGE
     Route: 048
     Dates: start: 20041021, end: 20041106
  4. PREDNISOLONE [Suspect]
     Indication: MYASTHENIA GRAVIS
     Dosage: SEE IMAGE
     Route: 048
     Dates: start: 20041107, end: 20041109
  5. PREDNISOLONE [Suspect]
     Indication: MYASTHENIA GRAVIS
     Dosage: SEE IMAGE
     Route: 048
     Dates: start: 20041110
  6. MYTELASE  (AMBENONIUM CHLORIDE) TABLET [Concomitant]
  7. MARZULENE S (LEVOGLUTAMIDE, SODIUM GUALENATE) POWDER [Concomitant]
  8. SELBEX (TEPRENONE) CAPSULE [Concomitant]
  9. BIOFERMIN (STREPTOCOCCUS FAECALIS, LACTOBACILLUS ACIDOPHILUS, BACILLUS [Concomitant]
  10. LOCHOL TABLET [Concomitant]
  11. ALFAROL (ALFACALCIDOL) CAPSULE [Concomitant]
  12. LORELCO (PROBUCOL) TABLET [Concomitant]
  13. BASEN (VOGLIBOSE) TABLET [Concomitant]

REACTIONS (3)
  - ATRIOVENTRICULAR BLOCK SECOND DEGREE [None]
  - NAUSEA [None]
  - PALPITATIONS [None]
